FAERS Safety Report 9616673 (Version 4)
Quarter: 2014Q3

REPORT INFORMATION
  Report Type: Spontaneous
  Country: US (occurrence: US)
  Receive Date: 20131011
  Receipt Date: 20140729
  Transmission Date: 20150326
  Serious: Yes (Other)
  Sender: FDA-Public Use
  Company Number: US-AMGEN-USASP2013069817

PATIENT
  Age: 69 Year
  Sex: Female
  Weight: 61.68 kg

DRUGS (15)
  1. FOLIC ACID. [Concomitant]
     Active Substance: FOLIC ACID
  2. ASPIRIN. [Concomitant]
     Active Substance: ASPIRIN
     Dosage: 81 MG, QD
  3. GINKO                              /01003101/ [Concomitant]
     Active Substance: GINKGO
  4. PREDNISONE. [Concomitant]
     Active Substance: PREDNISONE
     Dosage: 1 MG, UNK
  5. TRIAMTERENE AND HYDROCHLOROTHIAZIDE [Concomitant]
     Active Substance: HYDROCHLOROTHIAZIDE\TRIAMTERENE
  6. RESTASIS [Concomitant]
     Active Substance: CYCLOSPORINE
  7. METHOTREXATE [Concomitant]
     Active Substance: METHOTREXATE
     Dosage: UNK UNK, QWK
  8. SYNTHROID [Concomitant]
     Active Substance: LEVOTHYROXINE SODIUM
  9. GLUCOSAMINE + CHONDROITIN          /01430901/ [Concomitant]
  10. TRAMADOL [Concomitant]
     Active Substance: TRAMADOL
  11. PROLIA [Suspect]
     Active Substance: DENOSUMAB
     Indication: OSTEOPOROSIS
     Dosage: 60 MG, UNK
     Route: 058
     Dates: start: 20121217
  12. ESTROGEN [Concomitant]
     Active Substance: ESTRONE\SUS SCROFA OVARY
  13. NAMENDA [Concomitant]
     Active Substance: MEMANTINE HYDROCHLORIDE
     Indication: SPEECH DISORDER
  14. CELEBREX [Concomitant]
     Active Substance: CELECOXIB
     Dosage: 200 MG, AS NECESSARY
  15. PRAVASTATIN [Concomitant]
     Active Substance: PRAVASTATIN\PRAVASTATIN SODIUM

REACTIONS (5)
  - Gingival erosion [Unknown]
  - Jaw disorder [Unknown]
  - Gingival disorder [Unknown]
  - Gingival cyst [Unknown]
  - Tooth disorder [Unknown]

NARRATIVE: CASE EVENT DATE: 20131001
